FAERS Safety Report 7800378-2 (Version None)
Quarter: 2011Q4

REPORT INFORMATION
  Report Type: 
  Country: None (occurrence: None)
  Receive Date: 20111006
  Receipt Date: 20110926
  Transmission Date: 20120403
  Serious: Yes (Other)
  Sender: FDA-Public Use
  Company Number: US-BAYER-2011-009670

PATIENT
  Age: 28 Year
  Sex: Female
  Weight: 63.492 kg

DRUGS (7)
  1. YASMIN [Suspect]
     Indication: PRODUCT USED FOR UNKNOWN INDICATION
     Dosage: UNK
     Dates: start: 20071101, end: 20081201
  2. SINGULAIR [Concomitant]
     Dosage: 10 MG, QD
  3. YAZ [Suspect]
     Indication: PRODUCT USED FOR UNKNOWN INDICATION
     Dosage: UNK
     Dates: start: 20071101, end: 20081201
  4. SYMBYAX [Concomitant]
     Dosage: 100 MG, QD
  5. NEXIUM [Concomitant]
     Dosage: 40 MG, QD
  6. KLONOPIN [Concomitant]
     Dosage: 2 MG, QD
  7. SYMBYAX [Concomitant]
     Dosage: 50 MG, QD

REACTIONS (9)
  - ANXIETY [None]
  - DYSPNOEA [None]
  - LUNG DISORDER [None]
  - PULMONARY EMBOLISM [None]
  - EMOTIONAL DISTRESS [None]
  - PAIN [None]
  - MENTAL DISORDER [None]
  - CHEST PAIN [None]
  - FEAR [None]
